FAERS Safety Report 12588081 (Version 2)
Quarter: 2016Q3

REPORT INFORMATION
  Report Type: Spontaneous
  Country: US (occurrence: US)
  Receive Date: 20160725
  Receipt Date: 20160823
  Transmission Date: 20161109
  Serious: Yes (Hospitalization, Other)
  Sender: FDA-Public Use
  Company Number: US-SMITH AND NEPHEW, INC-2016SMT00603

PATIENT
  Sex: Male
  Weight: 81.63 kg

DRUGS (8)
  1. XALATAN [Concomitant]
     Active Substance: LATANOPROST
     Dosage: 1 DROP, 1X/DAY IN EACH EYE
  2. LUPRON DEPOT [Concomitant]
     Active Substance: LEUPROLIDE ACETATE
     Route: 030
  3. METFORMIN [Concomitant]
     Active Substance: METFORMIN HYDROCHLORIDE
     Dosage: 500 MG, 1X/DAY
  4. GLIPIZIDE ER [Concomitant]
     Active Substance: GLIPIZIDE
     Dosage: 10 MG, 1X/DAY
  5. NORCO [Concomitant]
     Active Substance: ACETAMINOPHEN\HYDROCODONE BITARTRATE
     Dosage: 1 TABLETS, UP TO 4X/DAY AS NEEDED
  6. IBUPROFEN. [Concomitant]
     Active Substance: IBUPROFEN
     Dosage: 400 MG, UP TO 4X/DAY AS NEEDED
     Route: 048
  7. REGRANEX [Suspect]
     Active Substance: BECAPLERMIN
     Indication: WOUND
     Dosage: UNK, 1X/DAY
     Route: 061
     Dates: start: 201605, end: 201606
  8. COUMADIN [Concomitant]
     Active Substance: WARFARIN SODIUM
     Dosage: 2.5 MG, 1X/DAY

REACTIONS (6)
  - Osteomyelitis [Not Recovered/Not Resolved]
  - Cellulitis [None]
  - Peripheral vascular disorder [Unknown]
  - Anticoagulation drug level below therapeutic [Unknown]
  - Hypertension [Unknown]
  - Glaucoma [Unknown]
